FAERS Safety Report 24007983 (Version 4)
Quarter: 2024Q4

REPORT INFORMATION
  Report Type: Report from Study
  Country: CA (occurrence: CA)
  Receive Date: 20240625
  Receipt Date: 20241112
  Transmission Date: 20250114
  Serious: Yes (Other)
  Sender: JOHNSON AND JOHNSON
  Company Number: CA-JNJFOC-20240211216

PATIENT
  Age: 62 Year
  Sex: Female
  Weight: 104 kg

DRUGS (6)
  1. REMICADE [Suspect]
     Active Substance: INFLIXIMAB
     Indication: Crohn^s disease
     Route: 041
     Dates: start: 20120803
  2. REMICADE [Suspect]
     Active Substance: INFLIXIMAB
     Route: 041
     Dates: start: 20210803
  3. REMICADE [Suspect]
     Active Substance: INFLIXIMAB
     Route: 041
  4. REMICADE [Suspect]
     Active Substance: INFLIXIMAB
     Route: 041
  5. REMICADE [Suspect]
     Active Substance: INFLIXIMAB
     Dosage: LAST DOSE ADMINISTERED ON 14-AUG-2024.
     Route: 041
  6. REMICADE [Suspect]
     Active Substance: INFLIXIMAB
     Route: 041
     Dates: start: 20120803

REACTIONS (11)
  - Crohn^s disease [Recovering/Resolving]
  - Tonsillitis [Not Recovered/Not Resolved]
  - Fungal infection [Recovered/Resolved]
  - Multiple allergies [Recovered/Resolved]
  - Gingival swelling [Unknown]
  - Denture wearer [Not Recovered/Not Resolved]
  - Productive cough [Recovered/Resolved]
  - Diarrhoea [Recovering/Resolving]
  - Influenza [Recovered/Resolved]
  - Product dose omission issue [Unknown]
  - Off label use [Unknown]

NARRATIVE: CASE EVENT DATE: 20240101
